FAERS Safety Report 14623693 (Version 4)
Quarter: 2018Q3

REPORT INFORMATION
  Report Type: Report from Study
  Country: JP (occurrence: JP)
  Receive Date: 20180312
  Receipt Date: 20180707
  Transmission Date: 20181010
  Serious: Yes (Other)
  Sender: FDA-Public Use
  Company Number: JP-AMGEN-JPNSP2017125119

PATIENT
  Age: 80 Year
  Sex: Female
  Weight: 38 kg

DRUGS (14)
  1. TENELIA [Concomitant]
     Active Substance: TENELIGLIPTIN
     Indication: DIABETES MELLITUS
     Dosage: 40 MG, UNK
     Route: 048
     Dates: start: 20170622, end: 20170720
  2. RABEPRAZOLE NA [Concomitant]
     Active Substance: RABEPRAZOLE SODIUM
     Dosage: 10 MG, QD
     Route: 048
     Dates: start: 20170713, end: 20170724
  3. CELECOX [Concomitant]
     Active Substance: CELECOXIB
     Indication: CHONDROCALCINOSIS PYROPHOSPHATE
     Dosage: 200 MG, UNK
     Route: 048
     Dates: start: 20170705, end: 20170710
  4. NAUZELIN [Concomitant]
     Active Substance: DOMPERIDONE
     Dosage: 20 MG, UNK
     Route: 048
     Dates: start: 20170807, end: 20170829
  5. CINACALCET HCL [Suspect]
     Active Substance: CINACALCET HYDROCHLORIDE
     Indication: HYPERPARATHYROIDISM PRIMARY
     Dosage: 25 MG, BID
     Route: 048
     Dates: start: 20170718, end: 20170912
  6. NAIXAN [Concomitant]
     Active Substance: NAPROXEN SODIUM
     Indication: RENAL CANCER
     Dosage: 100 MG, TID
     Route: 048
     Dates: start: 20170713, end: 20170724
  7. VOGLIBOSE [Concomitant]
     Active Substance: VOGLIBOSE
     Indication: DIABETES MELLITUS
     Dosage: 0.9 MG, QD
     Route: 048
  8. ALLOPURINOL. [Concomitant]
     Active Substance: ALLOPURINOL
     Indication: HYPERURICAEMIA
     Dosage: 50 MG, UNK
     Dates: start: 20170622, end: 20170724
  9. CAMSHIA [Concomitant]
     Active Substance: AMLODIPINE BESYLATE\CANDESARTAN CILEXETIL
     Indication: HYPERTENSION
     Dosage: 1 DF, UNK
     Route: 048
     Dates: start: 20170622, end: 20170722
  10. ATORVASTATIN [Concomitant]
     Active Substance: ATORVASTATIN
     Indication: DYSLIPIDAEMIA
     Dosage: 5 MG, QD
     Route: 048
     Dates: start: 20170622, end: 20170905
  11. CANDESARTAN. [Concomitant]
     Active Substance: CANDESARTAN
     Indication: HYPERTENSION
     Dosage: 8 MG, UNK
     Route: 048
     Dates: start: 20170723
  12. BISOPROLOL FUMARATE. [Concomitant]
     Active Substance: BISOPROLOL FUMARATE
     Indication: HYPERTENSION
     Dosage: 2.5 MG, UNK
     Route: 048
     Dates: start: 20170622, end: 20170814
  13. AMLODIPINE [Concomitant]
     Active Substance: AMLODIPINE BESYLATE
     Dosage: 5 MG, QD
     Route: 048
     Dates: start: 20170723, end: 20170829
  14. AMARYL [Concomitant]
     Active Substance: GLIMEPIRIDE
     Indication: DIABETES MELLITUS
     Dosage: 0.5 MG, BID
     Route: 048
     Dates: start: 20170622, end: 20170720

REACTIONS (4)
  - Pneumonia aspiration [Recovered/Resolved]
  - Nausea [Recovered/Resolved]
  - C-reactive protein increased [Recovered/Resolved]
  - Vomiting [Recovered/Resolved]

NARRATIVE: CASE EVENT DATE: 20170720
